FAERS Safety Report 21342237 (Version 1)
Quarter: 2022Q3

REPORT INFORMATION
  Report Type: Spontaneous
  Country: US (occurrence: None)
  Receive Date: 20220916
  Receipt Date: 20220916
  Transmission Date: 20221027
  Serious: Yes (Death, Hospitalization)
  Sender: FDA-Public Use
  Company Number: None

PATIENT
  Sex: Male
  Weight: 37.8 kg

DRUGS (3)
  1. CYCLOPHOSPHAMIDE [Suspect]
     Active Substance: CYCLOPHOSPHAMIDE
     Dates: end: 20220831
  2. DACTINOMYCIN [Suspect]
     Active Substance: DACTINOMYCIN
     Dates: end: 20220831
  3. VINORELBINE TARTRATE [Suspect]
     Active Substance: VINORELBINE TARTRATE
     Dates: end: 20220907

REACTIONS (17)
  - Anaemia [None]
  - Thrombocytopenia [None]
  - Metabolic acidosis [None]
  - Tachypnoea [None]
  - Lactic acidosis [None]
  - Pancytopenia [None]
  - Pupil fixed [None]
  - Transfusion reaction [None]
  - Infection [None]
  - Venoocclusive liver disease [None]
  - Hepatic failure [None]
  - Blood pressure fluctuation [None]
  - Acute kidney injury [None]
  - Acute respiratory failure [None]
  - Hypokalaemia [None]
  - Haematemesis [None]
  - Confusional state [None]

NARRATIVE: CASE EVENT DATE: 20220908
